FAERS Safety Report 5259745-6 (Version None)
Quarter: 2007Q1

REPORT INFORMATION
  Report Type: 
  Country: None (occurrence: None)
  Receive Date: 20070309
  Receipt Date: 20070228
  Transmission Date: 20070707
  Serious: Yes (Hospitalization)
  Sender: FDA-Public Use
  Company Number: 2006UW16345

PATIENT
  Sex: Female
  Weight: 100 kg

DRUGS (7)
  1. SEROQUEL [Suspect]
     Indication: MAJOR DEPRESSION
     Route: 048
     Dates: start: 20040405, end: 20040904
  2. RISPERDAL [Suspect]
     Indication: DEPRESSION
     Dates: start: 20020101, end: 20040301
  3. ZYPREXA [Concomitant]
     Indication: BIPOLAR DISORDER
     Dates: start: 20061001
  4. ADIPEX [Concomitant]
     Indication: WEIGHT CONTROL
     Dates: start: 20050101
  5. ABILIFY [Concomitant]
     Dates: start: 20050701, end: 20050801
  6. GEODON [Concomitant]
     Dates: start: 20050401, end: 20060501
  7. TRILAFON [Concomitant]
     Dates: start: 20050801

REACTIONS (9)
  - AFFECTIVE DISORDER [None]
  - ASTHENIA [None]
  - BLOOD CHOLESTEROL INCREASED [None]
  - DIABETES MELLITUS [None]
  - HYPERGLYCAEMIA [None]
  - HYPERLIPIDAEMIA [None]
  - LOSS OF CONSCIOUSNESS [None]
  - VISION BLURRED [None]
  - WEIGHT INCREASED [None]
